FAERS Safety Report 16030920 (Version 1)
Quarter: 2019Q1

REPORT INFORMATION
  Report Type: Spontaneous
  Country: US (occurrence: US)
  Receive Date: 20190304
  Receipt Date: 20190304
  Transmission Date: 20190418
  Serious: No
  Sender: FDA-Public Use
  Company Number: US-PFIZER INC-2019086767

PATIENT
  Age: 53 Year
  Sex: Female
  Weight: 97.7 kg

DRUGS (1)
  1. GABAPENTIN. [Suspect]
     Active Substance: GABAPENTIN
     Indication: PAIN IN EXTREMITY
     Dosage: UNK
     Dates: start: 2015, end: 2015

REACTIONS (9)
  - Migraine [Recovered/Resolved]
  - Tinnitus [Recovered/Resolved]
  - Disorientation [Recovered/Resolved]
  - Drug hypersensitivity [Unknown]
  - Drug ineffective for unapproved indication [Recovered/Resolved]
  - Tremor [Recovered/Resolved]
  - Sinusitis [Unknown]
  - Feeling abnormal [Unknown]
  - Gait disturbance [Unknown]

NARRATIVE: CASE EVENT DATE: 2015
